FAERS Safety Report 8009780-X (Version None)
Quarter: 2011Q4

REPORT INFORMATION
  Report Type: 
  Country: None (occurrence: None)
  Receive Date: 20111228
  Receipt Date: 20111219
  Transmission Date: 20120403
  Serious: Yes (Hospitalization, Disabling)
  Sender: FDA-Public Use
  Company Number: US-ACCORD-011715

PATIENT
  Age: 51 Year
  Sex: Female

DRUGS (1)
  1. MITOMYCIN [Suspect]
     Indication: CONJUNCTIVAL MELANOMA
     Dosage: 10 TIMES PRIOR SURGERY
     Route: 031

REACTIONS (3)
  - EYE DISORDER [None]
  - OFF LABEL USE [None]
  - BLINDNESS [None]
